FAERS Safety Report 24653334 (Version 1)
Quarter: 2024Q4

REPORT INFORMATION
  Report Type: Spontaneous
  Country: US (occurrence: None)
  Receive Date: 20241121
  Receipt Date: 20241121
  Transmission Date: 20250115
  Serious: No
  Sender: Public
  Company Number: None

PATIENT
  Sex: Male

DRUGS (14)
  1. AMBRISENTAN [Suspect]
     Active Substance: AMBRISENTAN
     Indication: Pulmonary arterial hypertension
     Dosage: FREQUENCY : DAILY;?
     Route: 048
  2. ELIQUIS [Suspect]
     Active Substance: APIXABAN
  3. LASIX [Concomitant]
     Active Substance: FUROSEMIDE
  4. METHOTREXATE [Concomitant]
     Active Substance: METHOTREXATE
  5. LISINOPRIL [Concomitant]
     Active Substance: LISINOPRIL
  6. SPIRONOLACTONE [Concomitant]
     Active Substance: SPIRONOLACTONE
  7. ALLOPURINOL [Concomitant]
     Active Substance: ALLOPURINOL
  8. TYLENOL [Concomitant]
     Active Substance: ACETAMINOPHEN
  9. POTASSIUM [Concomitant]
     Active Substance: POTASSIUM
  10. FOLIC ACID [Concomitant]
     Active Substance: FOLIC ACID
  11. TYVASO [Concomitant]
     Active Substance: TREPROSTINIL
  12. SILDENAFIL [Concomitant]
     Active Substance: SILDENAFIL
  13. ELIQUIS [Concomitant]
     Active Substance: APIXABAN
  14. ENBREL [Concomitant]
     Active Substance: ETANERCEPT

REACTIONS (2)
  - Haemorrhage [None]
  - Product communication issue [None]
